FAERS Safety Report 7913027-X (Version None)
Quarter: 2011Q4

REPORT INFORMATION
  Report Type: 
  Country: None (occurrence: None)
  Receive Date: 20111114
  Receipt Date: 20111114
  Transmission Date: 20120403
  Serious: Yes (Other)
  Sender: FDA-Public Use
  Company Number: AU-BAYER-2011-109546

PATIENT
  Age: 48 Year
  Sex: Female
  Weight: 72 kg

DRUGS (1)
  1. ULTRAVIST 150 [Suspect]
     Indication: CROHN'S DISEASE
     Dosage: 75 ML, ONCE
     Route: 042
     Dates: start: 20111111, end: 20111111

REACTIONS (1)
  - EYE SWELLING [None]
